FAERS Safety Report 4440566-9 (Version None)
Quarter: 2004Q3

REPORT INFORMATION
  Report Type: 
  Country: None (occurrence: None)
  Receive Date: 20040901
  Receipt Date: 20040901
  Transmission Date: 20050211
  Serious: Yes (Other)
  Sender: FDA-Public Use
  Company Number: None

PATIENT
  Age: 33 Year
  Sex: Female
  Weight: 55.8 kg

DRUGS (1)
  1. LACTAID CHEWABLE TABLETS [Suspect]
     Indication: LACTOSE INTOLERANCE
     Dosage: PO 2 TABS ONCE [SINGLE DOSE]
     Route: 048

REACTIONS (4)
  - DYSPHAGIA [None]
  - EAR PRURITUS [None]
  - PARAESTHESIA ORAL [None]
  - THROAT TIGHTNESS [None]
